FAERS Safety Report 5925426-6 (Version None)
Quarter: 2008Q4

REPORT INFORMATION
  Report Type: 
  Country: None (occurrence: None)
  Receive Date: 20081015
  Receipt Date: 20081006
  Transmission Date: 20090506
  Serious: Yes (Other)
  Sender: FDA-Public Use
  Company Number: RENA-1000267

PATIENT
  Sex: Female

DRUGS (2)
  1. RENAGEL [Suspect]
     Indication: HYPERPHOSPHATAEMIA
     Dosage: ORAL : ORAL
     Route: 048
  2. CALTRATE (CALCIUM CARBONATE) [Concomitant]

REACTIONS (2)
  - CONVULSION [None]
  - HYPOCALCAEMIA [None]
